FAERS Safety Report 4743730-4 (Version None)
Quarter: 2005Q3

REPORT INFORMATION
  Report Type: 
  Country: None (occurrence: None)
  Receive Date: 20050812
  Receipt Date: 20050810
  Transmission Date: 20060218
  Serious: Yes (Other)
  Sender: FDA-Public Use
  Company Number: US-GLAXOSMITHKLINE-A0569747A

PATIENT
  Sex: Male

DRUGS (2)
  1. PAXIL [Suspect]
     Indication: DRUG USE FOR UNKNOWN INDICATION
     Route: 065
     Dates: start: 20041001
  2. LAMICTAL [Suspect]
     Indication: EPILEPSY
     Route: 048

REACTIONS (3)
  - CONVULSION [None]
  - SERUM SEROTONIN DECREASED [None]
  - SERUM SEROTONIN INCREASED [None]
